FAERS Safety Report 8409131-2 (Version None)
Quarter: 2012Q2

REPORT INFORMATION
  Report Type: 
  Country: None (occurrence: None)
  Receive Date: 20120604
  Receipt Date: 20120529
  Transmission Date: 20120825
  Serious: Yes (Life-Threatening)
  Sender: FDA-Public Use
  Company Number: US-BAYER-2012-053968

PATIENT
  Sex: Female

DRUGS (1)
  1. ONE-A-DAY ESSENTIAL [Suspect]
     Dosage: 1 U, ONCE
     Route: 048

REACTIONS (2)
  - UNEVALUABLE EVENT [None]
  - MALAISE [None]
